FAERS Safety Report 18902133 (Version 1)
Quarter: 2021Q1

REPORT INFORMATION
  Report Type: Spontaneous
  Country: JP (occurrence: JP)
  Receive Date: 20210216
  Receipt Date: 20210216
  Transmission Date: 20210420
  Serious: Yes (Other)
  Sender: FDA-Public Use
  Company Number: JP-GILEAD-2021-0513111

PATIENT
  Age: 89 Year
  Sex: Male

DRUGS (28)
  1. MORPHINE HYDROCHLORIDE [Concomitant]
     Active Substance: MORPHINE HYDROCHLORIDE
     Dosage: FROM THE 25TH DAY
     Route: 065
  2. FAMOTIDINE. [Concomitant]
     Active Substance: FAMOTIDINE
     Dosage: UNK
     Route: 048
  3. MAGNESIUM OXIDE. [Concomitant]
     Active Substance: MAGNESIUM OXIDE
     Dosage: UNK
     Route: 048
  4. ATORVASTATIN [Concomitant]
     Active Substance: ATORVASTATIN
     Dosage: UNK
     Route: 048
  5. MEROPENEM. [Concomitant]
     Active Substance: MEROPENEM
     Dosage: 1.0 G, Q12H, ON THE 21ST?38TH HOSPITAL DAY
     Route: 065
  6. PREDNISOLONE. [Concomitant]
     Active Substance: PREDNISOLONE
     Dosage: 60 MG, FROM THE 31ST HOSPITAL DAY
     Route: 065
  7. YM POWDER [Concomitant]
     Dosage: UNK
     Route: 048
  8. VEKLURY [Suspect]
     Active Substance: REMDESIVIR
     Dosage: 100 MG, Q24H, ON THE 4TH?7TH HOSPITAL DAY
     Route: 065
  9. OLMESARTAN [OLMESARTAN MEDOXOMIL] [Concomitant]
     Active Substance: OLMESARTAN MEDOXOMIL
     Dosage: UNK
     Route: 048
  10. TAMSULOSIN HYDROCHLORIDE OD [Concomitant]
     Active Substance: TAMSULOSIN HYDROCHLORIDE
     Dosage: UNK
     Route: 048
  11. MIDAZOLAM. [Concomitant]
     Active Substance: MIDAZOLAM
     Dosage: ON THE 39TH HOSPITAL DAY
     Route: 041
  12. VEKLURY [Suspect]
     Active Substance: REMDESIVIR
     Indication: COVID-19
     Dosage: 200 MG, Q24H, ON THE 3RD HOSPITAL DAY
     Route: 065
  13. HEPARIN SODIUM. [Concomitant]
     Active Substance: HEPARIN SODIUM
     Dosage: ON THE 3RD?11TH HOSPITAL DAY
     Route: 065
  14. SULFAMETHOXAZOLE;TRIMETHOPRIM [Concomitant]
     Active Substance: SULFAMETHOXAZOLE\TRIMETHOPRIM
     Dosage: 1 DOSAGE FORM, FROM THE 21ST HOSPITAL DAY, ON MONDAY, WEDNESDAY, FRIDAY
     Route: 065
  15. AMLODIPINE [Concomitant]
     Active Substance: AMLODIPINE BESYLATE
     Dosage: UNK
     Route: 048
  16. DEXMEDETOMIDINE. [Concomitant]
     Active Substance: DEXMEDETOMIDINE
     Dosage: 6 MG, ON THE 4TH?10TH HOSPITAL DAY
     Route: 065
  17. MINOCYCLINE HYDROCHLORIDE. [Concomitant]
     Active Substance: MINOCYCLINE HYDROCHLORIDE
     Dosage: 100 MG, Q12H, ON THE 1ST?3RD HOSPITAL DAY
     Route: 065
  18. BROTIZOLAM [Concomitant]
     Active Substance: BROTIZOLAM
     Dosage: UNK
     Route: 048
  19. METHYLPREDNISOLONE. [Concomitant]
     Active Substance: METHYLPREDNISOLONE
     Dosage: 1000 MG, ON THE 28TH?30TH HOSPITAL DAY
     Route: 065
  20. SULFAMETHOXAZOLE;TRIMETHOPRIM [Concomitant]
     Active Substance: SULFAMETHOXAZOLE\TRIMETHOPRIM
     Dosage: 1 DOSAGE FORM, ON THE 4TH?11TH DAY, CONSECUTIVE DAYS
     Route: 065
  21. PREDNISOLONE. [Concomitant]
     Active Substance: PREDNISOLONE
     Dosage: 70 MG, ON THE 24TH?28TH DAY
     Route: 065
  22. METHYLPREDNISOLONE. [Concomitant]
     Active Substance: METHYLPREDNISOLONE
     Dosage: 1000 MG, ON THE 1ST?3RD HOSPITAL DAY
     Route: 065
  23. METHYLPREDNISOLONE. [Concomitant]
     Active Substance: METHYLPREDNISOLONE
     Dosage: 1000 MG, ON THE 21ST?23RD HOSPITAL DAY
     Route: 065
  24. DEXMEDETOMIDINE. [Concomitant]
     Active Substance: DEXMEDETOMIDINE
     Dosage: 6 MG, ON THE 18TH?21ST HOSPITAL DAY
     Route: 065
  25. MEROPENEM. [Concomitant]
     Active Substance: MEROPENEM
     Dosage: 1.0 G, Q8H, ON THE 1ST?3RD HOSPITAL DAY
     Route: 065
  26. CEFMETAZOLE SODIUM [Concomitant]
     Active Substance: CEFMETAZOLE SODIUM
     Dosage: 1.0 MG, Q12H, ON THE 18TH?21ST DAY
     Route: 065
  27. HEPARIN SODIUM. [Concomitant]
     Active Substance: HEPARIN SODIUM
     Dosage: FROM THE 21ST HOSPITAL DAY
     Route: 065
  28. BICALUTAMIDE. [Concomitant]
     Active Substance: BICALUTAMIDE
     Dosage: UNK
     Route: 048

REACTIONS (3)
  - Infection reactivation [Unknown]
  - Interstitial lung disease [Unknown]
  - COVID-19 [Unknown]
